FAERS Safety Report 11846120 (Version 1)
Quarter: 2015Q4

REPORT INFORMATION
  Report Type: Spontaneous
  Country: None (occurrence: US)
  Receive Date: 20151217
  Receipt Date: 20151217
  Transmission Date: 20160305
  Serious: Yes (Other)
  Sender: FDA-Public Use
  Company Number: US-NSR_02285_2015

PATIENT
  Age: 65 Year
  Sex: Female
  Weight: 90 kg

DRUGS (6)
  1. ALLOPURINOL. [Suspect]
     Active Substance: ALLOPURINOL
     Indication: GOUT
     Dosage: [DAILY]
     Dates: start: 20150606, end: 20150722
  2. ALLOPURINOL. [Suspect]
     Active Substance: ALLOPURINOL
     Dosage: [DAILY]
     Dates: start: 20150723, end: 20151114
  3. ALLOPURINOL. [Suspect]
     Active Substance: ALLOPURINOL
     Dosage: [ONCE]
     Dates: start: 20151117, end: 20151117
  4. COLCHICINE. [Concomitant]
     Active Substance: COLCHICINE
     Indication: GOUT
     Dosage: DF
  5. TRAZODONE [Concomitant]
     Active Substance: TRAZODONE HYDROCHLORIDE
     Indication: SLEEP DISORDER THERAPY
     Dosage: DF, [PRN]
  6. BABY ASPIRIN [Concomitant]
     Active Substance: ASPIRIN
     Dosage: 1 DF, [DAILY]

REACTIONS (6)
  - Spinal pain [Recovering/Resolving]
  - Pain of skin [Unknown]
  - Presyncope [Unknown]
  - Nausea [Unknown]
  - Activities of daily living impaired [Unknown]
  - Back pain [Recovering/Resolving]

NARRATIVE: CASE EVENT DATE: 201507
